FAERS Safety Report 5293726-1 (Version None)
Quarter: 2007Q2

REPORT INFORMATION
  Report Type: 
  Country: None (occurrence: None)
  Receive Date: 20070411
  Receipt Date: 20070402
  Transmission Date: 20071010
  Serious: Yes (Hospitalization)
  Sender: FDA-Public Use
  Company Number: AT-ABBOTT-07P-009-0363889-00

PATIENT
  Sex: Male

DRUGS (5)
  1. NORVIR [Suspect]
     Indication: HIV INFECTION
     Route: 048
     Dates: start: 20061201
  2. APTIVUS [Suspect]
     Indication: HIV INFECTION
     Route: 048
     Dates: start: 20061201
  3. LAMIVUDINE + ZIDOVUDINE [Concomitant]
     Indication: HIV INFECTION
     Route: 048
     Dates: start: 20061201
  4. FUZEON [Concomitant]
     Indication: HIV INFECTION
     Route: 058
     Dates: start: 20061001
  5. DOXORUBICIN HYDROCHLORIDE [Concomitant]
     Indication: KAPOSI'S SARCOMA
     Route: 042
     Dates: start: 20070101, end: 20070301

REACTIONS (3)
  - ACUTE ABDOMEN [None]
  - CYTOMEGALOVIRUS INFECTION [None]
  - INTESTINAL PERFORATION [None]
